FAERS Safety Report 9315752 (Version 1)
Quarter: 2013Q2

REPORT INFORMATION
  Report Type: Spontaneous
  Country: JP (occurrence: JP)
  Receive Date: 20130529
  Receipt Date: 20130529
  Transmission Date: 20140414
  Serious: Yes (Other)
  Sender: FDA-Public Use
  Company Number: JP-PFIZER INC-2013157790

PATIENT
  Age: 7 Year
  Sex: Female

DRUGS (7)
  1. VORICONAZOLE [Suspect]
     Indication: INFECTION PROPHYLAXIS
     Dosage: 5 MG/KG/DAY, TWICE DAILY
     Route: 042
  2. MICAFUNGIN [Suspect]
     Indication: INFECTION PROPHYLAXIS
  3. LIPOSOMAL AMPHOTERICIN [Suspect]
     Indication: INFECTION PROPHYLAXIS
  4. ETOPOSIDE [Concomitant]
     Indication: ACUTE MYELOID LEUKAEMIA
  5. CYTARABINE [Concomitant]
     Indication: ACUTE MYELOID LEUKAEMIA
  6. MITOXANTRONE [Concomitant]
     Indication: ACUTE MYELOID LEUKAEMIA
  7. IDARUBICIN [Concomitant]
     Indication: ACUTE MYELOID LEUKAEMIA

REACTIONS (2)
  - Zygomycosis [Recovering/Resolving]
  - Drug ineffective [Unknown]
